FAERS Safety Report 9873377 (Version 1)
Quarter: 2014Q1

REPORT INFORMATION
  Report Type: Report from Study
  Country: DE (occurrence: DE)
  Receive Date: 20140206
  Receipt Date: 20140206
  Transmission Date: 20141002
  Serious: Yes (Hospitalization)
  Sender: FDA-Public Use
  Company Number: DE-ROCHE-1340898

PATIENT
  Age: 61 Year
  Sex: Male

DRUGS (7)
  1. RITUXIMAB [Suspect]
     Indication: RHEUMATOID ARTHRITIS
     Route: 042
     Dates: start: 20120112
  2. RITUXIMAB [Suspect]
     Route: 042
     Dates: start: 20120710
  3. RITUXIMAB [Suspect]
     Route: 042
     Dates: start: 20130124
  4. METHOTREXATE [Suspect]
     Indication: RHEUMATOID ARTHRITIS
     Route: 065
     Dates: start: 201111
  5. TILIDIN COMP [Concomitant]
     Dosage: 50MG/4MG PER DAY IF REQUIRED
     Route: 065
  6. PREDNISOLONE [Concomitant]
     Indication: RHEUMATOID ARTHRITIS
     Route: 065
  7. FOLIC ACID [Concomitant]
     Indication: RHEUMATOID ARTHRITIS
     Route: 065

REACTIONS (2)
  - Rheumatoid nodule [Recovered/Resolved]
  - Finger deformity [Recovered/Resolved]
